FAERS Safety Report 9238113 (Version 1)
Quarter: 2013Q2

REPORT INFORMATION
  Report Type: Report from Study
  Country: BO (occurrence: BO)
  Receive Date: 20130418
  Receipt Date: 20130418
  Transmission Date: 20140414
  Serious: Yes (Other)
  Sender: FDA-Public Use
  Company Number: PHHY2012BO118282

PATIENT
  Age: 39 Year
  Sex: Female

DRUGS (2)
  1. GLIVEC [Suspect]
     Indication: CHRONIC MYELOID LEUKAEMIA
     Dosage: 300 MG, DAILY
     Dates: start: 200704
  2. GLIVEC [Suspect]
     Dosage: 40 MG, UNK
     Route: 048
     Dates: start: 200704

REACTIONS (3)
  - Cardiomegaly [Recovered/Resolved]
  - Leukocytosis [Unknown]
  - Chest pain [Recovered/Resolved]
